FAERS Safety Report 5294635-4 (Version None)
Quarter: 2007Q2

REPORT INFORMATION
  Report Type: 
  Country: None (occurrence: None)
  Receive Date: 20070412
  Receipt Date: 20070410
  Transmission Date: 20071010
  Serious: Yes (Other)
  Sender: FDA-Public Use
  Company Number: JP-JPN-A200701572

PATIENT
  Age: 7 Year
  Sex: Male
  Weight: 20 kg

DRUGS (3)
  1. RELENZA [Suspect]
     Indication: INFLUENZA
     Dosage: 2PUFF PER DAY
     Route: 055
     Dates: start: 20070327, end: 20070327
  2. METHISTA [Concomitant]
     Dosage: 250MG TWICE PER DAY
     Route: 048
     Dates: start: 20070327
  3. SOLITA-T [Concomitant]
     Route: 048
     Dates: start: 20070327

REACTIONS (3)
  - HALLUCINATION [None]
  - MUSCULOSKELETAL STIFFNESS [None]
  - STARING [None]
